FAERS Safety Report 8597476-5 (Version None)
Quarter: 2012Q3

REPORT INFORMATION
  Report Type: 
  Country: None (occurrence: None)
  Receive Date: 20120816
  Receipt Date: 20120809
  Transmission Date: 20120928
  Serious: Yes (Hospitalization)
  Sender: FDA-Public Use
  Company Number: US-JNJFOC-20120612810

PATIENT
  Age: 61 Year
  Sex: Female
  Weight: 89.81 kg

DRUGS (3)
  1. ROGAINE (FOR WOMEN) [Suspect]
     Route: 061
  2. ESTROGEN [Concomitant]
     Indication: HORMONE REPLACEMENT THERAPY
     Route: 065
     Dates: start: 19920101
  3. ROGAINE (FOR WOMEN) [Suspect]
     Indication: ALOPECIA
     Dosage: 3/4 DROPPER
     Route: 061
     Dates: start: 20120101, end: 20120101

REACTIONS (12)
  - NASOPHARYNGITIS [None]
  - CHEST PAIN [None]
  - HYPERTENSION [None]
  - OEDEMA PERIPHERAL [None]
  - PALPITATIONS [None]
  - HEADACHE [None]
  - OVERDOSE [None]
  - APPLICATION SITE RASH [None]
  - ALOPECIA [None]
  - DYSPNOEA [None]
  - APPLICATION SITE REACTION [None]
  - INSOMNIA [None]
